FAERS Safety Report 19327493 (Version 2)
Quarter: 2021Q2

REPORT INFORMATION
  Report Type: Spontaneous
  Country: US (occurrence: US)
  Receive Date: 20210528
  Receipt Date: 20210625
  Transmission Date: 20210717
  Serious: No
  Sender: FDA-Public Use
  Company Number: US-GW PHARMA-202105USGW02581

PATIENT

DRUGS (1)
  1. EPIDIOLEX [Suspect]
     Active Substance: CANNABIDIOL
     Indication: EPILEPSY
     Dosage: 600 MILLIGRAM
     Route: 048
     Dates: start: 202103, end: 202106

REACTIONS (8)
  - Insomnia [Unknown]
  - Aggression [Unknown]
  - Decreased interest [Unknown]
  - Mood altered [Unknown]
  - Decreased appetite [Unknown]
  - Drug ineffective [Unknown]
  - Seizure [Unknown]
  - Amnesia [Unknown]

NARRATIVE: CASE EVENT DATE: 2021
